FAERS Safety Report 4472312-7 (Version None)
Quarter: 2004Q4

REPORT INFORMATION
  Report Type: 
  Country: None (occurrence: None)
  Receive Date: 20041007
  Receipt Date: 20040927
  Transmission Date: 20050328
  Serious: Yes (Hospitalization)
  Sender: FDA-Public Use
  Company Number: 202797

PATIENT
  Age: 53 Year
  Sex: Female

DRUGS (6)
  1. AVONEX [Suspect]
     Indication: MULTIPLE SCLEROSIS
     Dosage: 30 MCG QW IM
     Route: 030
     Dates: start: 20030818
  2. SOLU-MEDROL [Concomitant]
  3. PROTONIX [Concomitant]
  4. CALCIUM [Concomitant]
  5. TENORMIN [Concomitant]
  6. ESTROGEN REPLACEMENT [Concomitant]

REACTIONS (7)
  - CHEST PAIN [None]
  - DEHYDRATION [None]
  - FATIGUE [None]
  - HEART RATE ABNORMAL [None]
  - INFLUENZA LIKE ILLNESS [None]
  - MUSCULOSKELETAL PAIN [None]
  - PAIN [None]
